FAERS Safety Report 16770600 (Version 1)
Quarter: 2019Q3

REPORT INFORMATION
  Report Type: Spontaneous
  Country: CA (occurrence: CA)
  Receive Date: 20190904
  Receipt Date: 20190904
  Transmission Date: 20191005
  Serious: Yes (Death, Hospitalization)
  Sender: FDA-Public Use
  Company Number: CA-MALLINCKRODT-T201906088

PATIENT
  Age: 75 Year
  Sex: Male

DRUGS (1)
  1. EXALGO [Suspect]
     Active Substance: HYDROMORPHONE HYDROCHLORIDE
     Indication: PRODUCT USED FOR UNKNOWN INDICATION
     Dosage: UNK
     Route: 048

REACTIONS (10)
  - Malignant pleural effusion [Unknown]
  - Somnolence [Unknown]
  - Delirium [Unknown]
  - Dyspnoea [Unknown]
  - Suicide attempt [Unknown]
  - Overdose [Unknown]
  - Abdominal pain [Unknown]
  - Death [Fatal]
  - Fear [Unknown]
  - Respiratory rate decreased [Unknown]
